FAERS Safety Report 24349982 (Version 1)
Quarter: 2024Q3

REPORT INFORMATION
  Report Type: Spontaneous
  Country: RU (occurrence: RU)
  Receive Date: 20240923
  Receipt Date: 20240923
  Transmission Date: 20241016
  Serious: No
  Sender: ROCHE
  Company Number: RU-ROCHE-3499617

PATIENT
  Sex: Female

DRUGS (1)
  1. HERCEPTIN [Suspect]
     Active Substance: TRASTUZUMAB
     Indication: Product used for unknown indication
     Route: 065

REACTIONS (7)
  - Pain in extremity [Unknown]
  - Tinnitus [Unknown]
  - Nausea [Unknown]
  - Tinnitus [Unknown]
  - Dizziness [Unknown]
  - Tremor [Unknown]
  - Pyrexia [Unknown]
